FAERS Safety Report 7282910-3 (Version None)
Quarter: 2011Q1

REPORT INFORMATION
  Report Type: 
  Country: None (occurrence: None)
  Receive Date: 20110128
  Receipt Date: 20110120
  Transmission Date: 20110831
  Serious: Yes (Congenital Anomaly)
  Sender: FDA-Public Use
  Company Number: 1000018277

PATIENT
  Sex: Male

DRUGS (2)
  1. LEXAPRO [Suspect]
     Dosage: 10 MG (10 MG, 1 IN 1 D), TRANSPLACENTAL , 10 MG (10 MG,1 IN 1 D),TRANSMAMMARY
     Route: 064
     Dates: start: 20100911
  2. LEXAPRO [Suspect]
     Dosage: 10 MG (10 MG, 1 IN 1 D), TRANSPLACENTAL , 10 MG (10 MG,1 IN 1 D),TRANSMAMMARY
     Route: 064
     Dates: start: 20100101, end: 20100910

REACTIONS (2)
  - CRANIOSYNOSTOSIS [None]
  - MATERNAL DRUGS AFFECTING FOETUS [None]
